FAERS Safety Report 10454308 (Version 1)
Quarter: 2014Q3

REPORT INFORMATION
  Report Type: Spontaneous
  Country: SE (occurrence: SE)
  Receive Date: 20140915
  Receipt Date: 20140915
  Transmission Date: 20150326
  Serious: Yes (Other)
  Sender: FDA-Public Use
  Company Number: SE-SA-2014SA124363

PATIENT
  Age: 59 Year
  Sex: Male

DRUGS (2)
  1. TAXOTERE [Suspect]
     Active Substance: DOCETAXEL
     Indication: PROSTATE CANCER
     Route: 042
     Dates: start: 20140723
  2. TAXOTERE [Suspect]
     Active Substance: DOCETAXEL
     Indication: METASTASES TO BONE
     Route: 042
     Dates: start: 20140723

REACTIONS (2)
  - Alveolitis [Not Recovered/Not Resolved]
  - Interstitial lung disease [Not Recovered/Not Resolved]

NARRATIVE: CASE EVENT DATE: 20140826
